FAERS Safety Report 8025845 (Version 4)
Quarter: 2013Q4

REPORT INFORMATION
  Report Type: Spontaneous
  Country: CA (occurrence: CA)
  Receive Date: 20110708
  Receipt Date: 20131118
  Transmission Date: 20140711
  Serious: Yes (Hospitalization)
  Sender: FDA-Public Use
  Company Number: CA-JNJFOC-20110412537

PATIENT
  Sex: Male
  Weight: 81.19 kg

DRUGS (5)
  1. ROGAINE UNSPECIFIED [Suspect]
     Route: 061
  2. ROGAINE UNSPECIFIED [Suspect]
     Indication: ALOPECIA
     Route: 061
  3. MINOXIDIL [Suspect]
     Indication: ALOPECIA
     Route: 061
  4. ZOPICLONE [Concomitant]
     Indication: NERVOUSNESS
     Route: 065
     Dates: start: 20110125
  5. ZOPICLONE [Concomitant]
     Indication: INSOMNIA
     Route: 065
     Dates: start: 20110125

REACTIONS (35)
  - Subcutaneous abscess [Recovering/Resolving]
  - Application site infection [Unknown]
  - Folliculitis [Recovering/Resolving]
  - Neurodermatitis [Recovering/Resolving]
  - Activities of daily living impaired [Unknown]
  - Scar [Unknown]
  - Nervous system disorder [Unknown]
  - Ear infection [Unknown]
  - Cellulitis [Unknown]
  - Loss of consciousness [Unknown]
  - Hypertrichosis [Not Recovered/Not Resolved]
  - Headache [Unknown]
  - Overdose [Recovered/Resolved]
  - Acarodermatitis [Unknown]
  - Accidental exposure to product [Unknown]
  - Blood test abnormal [Unknown]
  - Skin infection [Unknown]
  - Application site reaction [Unknown]
  - Alopecia [Unknown]
  - Application site ulcer [Unknown]
  - Eczema [Unknown]
  - Medication residue present [Unknown]
  - Hair growth abnormal [Unknown]
  - Swelling [Unknown]
  - Infection [Unknown]
  - Abdominal pain [Unknown]
  - Lethargy [Unknown]
  - Urine analysis abnormal [Unknown]
  - Testicular pain [Recovering/Resolving]
  - Pollakiuria [Recovering/Resolving]
  - Urinary incontinence [Recovering/Resolving]
  - Malaise [Unknown]
  - Application site pain [Unknown]
  - Burning sensation [Unknown]
  - Hair texture abnormal [Unknown]
